FAERS Safety Report 9268557 (Version 3)
Quarter: 2013Q2

REPORT INFORMATION
  Report Type: Spontaneous
  Country: JP (occurrence: JP)
  Receive Date: 20130502
  Receipt Date: 20130515
  Transmission Date: 20140414
  Serious: Yes (Disabling, Other)
  Sender: FDA-Public Use
  Company Number: CHPA2013JP007025

PATIENT
  Sex: Female

DRUGS (5)
  1. NICOTINELL TTS [Suspect]
     Indication: SMOKING CESSATION THERAPY
     Dosage: 17.5 MG, QD
     Route: 062
  2. NICOTINELL TTS [Suspect]
     Dosage: 35 MG, QD
     Route: 062
     Dates: start: 20130410
  3. NICOTINELL TTS [Suspect]
     Dosage: 52.5MG; QD
     Route: 062
     Dates: start: 20130313, end: 20130409
  4. DEPAS [Concomitant]
     Dosage: 0.2 MG, TID
  5. ANTIHYPERTENSIVE DRUGS [Concomitant]
     Dosage: UNK, UNK

REACTIONS (24)
  - Dysphagia [Unknown]
  - Stomatitis [Unknown]
  - Oropharyngeal pain [Unknown]
  - Thirst [Unknown]
  - Nightmare [Unknown]
  - Malaise [Unknown]
  - Abdominal discomfort [Unknown]
  - Visual impairment [Unknown]
  - Tongue disorder [Unknown]
  - Glossodynia [Unknown]
  - Mobility decreased [Unknown]
  - Somnolence [Unknown]
  - Decreased appetite [Unknown]
  - Insomnia [Unknown]
  - Agitation [Unknown]
  - Irritability [Unknown]
  - Headache [Unknown]
  - Nicotine dependence [Unknown]
  - Tremor [Unknown]
  - Nausea [Unknown]
  - Vomiting [Unknown]
  - Dry mouth [Unknown]
  - Treatment noncompliance [Unknown]
  - Overdose [Unknown]
